FAERS Safety Report 19962722 (Version 3)
Quarter: 2024Q2

REPORT INFORMATION
  Report Type: Spontaneous
  Country: JP (occurrence: JP)
  Receive Date: 20211018
  Receipt Date: 20240624
  Transmission Date: 20240716
  Serious: Yes (Other)
  Sender: FDA-Public Use
  Company Number: JP-RECORDATI-2021003681

PATIENT

DRUGS (10)
  1. ISTURISA [Suspect]
     Active Substance: OSILODROSTAT PHOSPHATE
     Indication: Pituitary-dependent Cushing^s syndrome
     Dosage: 2 MILLIGRAM/DAY
     Dates: start: 20210820
  2. ISTURISA [Suspect]
     Active Substance: OSILODROSTAT PHOSPHATE
     Dosage: 4 MILLIGRAM/DAY
     Dates: start: 20210824
  3. ISTURISA [Suspect]
     Active Substance: OSILODROSTAT PHOSPHATE
     Dosage: 6 MILLIGRAM/DAY
     Dates: start: 20210827
  4. ISTURISA [Suspect]
     Active Substance: OSILODROSTAT PHOSPHATE
     Dosage: 8 MILLIGRAM/DAY
     Dates: start: 20210831
  5. ISTURISA [Suspect]
     Active Substance: OSILODROSTAT PHOSPHATE
     Dosage: 10 MILLIGRAM/DAY
     Dates: start: 20210903, end: 20210907
  6. METYRAPONE [Concomitant]
     Active Substance: METYRAPONE
     Indication: Cushing^s syndrome
     Dosage: DOSE RANGING FROM 500 TO 2500 MG/DAY
     Route: 048
  7. METYRAPONE [Concomitant]
     Active Substance: METYRAPONE
     Dosage: 2500 MILLIGRAM, QD
     Route: 048
  8. NESINA [Concomitant]
     Active Substance: ALOGLIPTIN BENZOATE
     Indication: Product used for unknown indication
     Dosage: 25 MILLIGRAM, DAILY
     Route: 048
  9. SLOW-K [Concomitant]
     Active Substance: POTASSIUM CHLORIDE
     Indication: Product used for unknown indication
     Dosage: 2400 MILLIGRAM, DAILY
     Route: 048
     Dates: end: 20210825
  10. SLOW-K [Concomitant]
     Active Substance: POTASSIUM CHLORIDE
     Dosage: 3600 MILLIGRAM, DAILY
     Route: 048
     Dates: start: 20210826

REACTIONS (7)
  - Hypokalaemia [Unknown]
  - Cortisol increased [Unknown]
  - Cortisol free urine increased [Unknown]
  - Eosinophil count decreased [Recovering/Resolving]
  - Hyperglycaemia [Unknown]
  - Blood corticotrophin increased [Unknown]
  - Therapeutic product effect incomplete [Recovered/Resolved]

NARRATIVE: CASE EVENT DATE: 20210821
